FAERS Safety Report 18260196 (Version 1)
Quarter: 2020Q3

REPORT INFORMATION
  Report Type: Spontaneous
  Country: US (occurrence: US)
  Receive Date: 20200913
  Receipt Date: 20200913
  Transmission Date: 20201103
  Serious: No
  Sender: FDA-Public Use
  Company Number: US-009507513-2009USA003580

PATIENT
  Sex: Female

DRUGS (1)
  1. JANUVIA [Suspect]
     Active Substance: SITAGLIPTIN PHOSPHATE
     Dosage: 100 MG TABLET / FREQUENCY REFUSED TO ANSWER
     Route: 048

REACTIONS (2)
  - Ill-defined disorder [Unknown]
  - Wrong technique in product usage process [Unknown]
